FAERS Safety Report 8041959-3 (Version None)
Quarter: 2012Q1

REPORT INFORMATION
  Report Type: 
  Country: None (occurrence: None)
  Receive Date: 20120112
  Receipt Date: 20120104
  Transmission Date: 20120608
  Serious: Yes (Other)
  Sender: FDA-Public Use
  Company Number: PHHY2012FR001686

PATIENT
  Age: 77 Year
  Sex: Male

DRUGS (1)
  1. ONBREZ [Suspect]
     Dosage: UNK

REACTIONS (1)
  - HYPERTENSION [None]
